FAERS Safety Report 18352303 (Version 3)
Quarter: 2020Q4

REPORT INFORMATION
  Report Type: Other
  Country: PL (occurrence: PL)
  Receive Date: 20201007
  Receipt Date: 20201116
  Transmission Date: 20210114
  Serious: Yes (Other)
  Sender: FDA-Public Use
  Company Number: PL-ROCHE-2687895

PATIENT
  Age: 32 Year
  Sex: Male

DRUGS (2)
  1. CAPECITABINE. [Suspect]
     Active Substance: CAPECITABINE
     Indication: PANCREATIC NEUROENDOCRINE TUMOUR METASTATIC
     Dosage: 2X750 MG/M2 1-14 DAY
     Route: 048
     Dates: start: 2017, end: 201911
  2. TEMOZOLOMIDE. [Suspect]
     Active Substance: TEMOZOLOMIDE
     Indication: PANCREATIC NEUROENDOCRINE TUMOUR METASTATIC
     Dosage: 200 MG/M2, 10TH-14TH DAY, CYCLE OF 28 DAYS
     Route: 065
     Dates: start: 2017, end: 201911

REACTIONS (10)
  - Therapy partial responder [Unknown]
  - Pancreatic neuroendocrine tumour metastatic [Unknown]
  - Hepatic lesion [Unknown]
  - Bone pain [Unknown]
  - Myalgia [Unknown]
  - Intentional product use issue [Unknown]
  - Metastases to liver [Unknown]
  - Malignant neoplasm progression [Unknown]
  - Asthenia [Unknown]
  - Off label use [Unknown]

NARRATIVE: CASE EVENT DATE: 2017
